FAERS Safety Report 8513872 (Version 19)
Quarter: 2015Q2

REPORT INFORMATION
  Report Type: Report from Study
  Country: GB (occurrence: GB)
  Receive Date: 20120416
  Receipt Date: 20150424
  Transmission Date: 20150821
  Serious: Yes (Other)
  Sender: FDA-Public Use
  Company Number: GB-ROCHE-1056349

PATIENT
  Age: 75 Year
  Sex: Male
  Weight: 78 kg

DRUGS (8)
  1. AVEENO BATH [Concomitant]
     Dosage: 1 APP
     Route: 065
     Dates: start: 20120202
  2. PARACETAMOL [Concomitant]
     Active Substance: ACETAMINOPHEN
     Route: 065
     Dates: start: 20120213
  3. NYSTATIN. [Concomitant]
     Active Substance: NYSTATIN
     Route: 065
     Dates: start: 20120218, end: 20120426
  4. VEMURAFENIB [Suspect]
     Active Substance: VEMURAFENIB
     Route: 048
     Dates: start: 20120316, end: 20120329
  5. FUCIBET CREAM [Concomitant]
     Active Substance: BETAMETHASONE\FUSIDIC ACID
     Route: 065
     Dates: start: 20120405
  6. VEMURAFENIB [Suspect]
     Active Substance: VEMURAFENIB
     Indication: MALIGNANT MELANOMA
     Dosage: DATE OF LAST DOSE PRIOR TO 1ST SAE:05 APR 2012?DATE OF LAST DOSE PRIOR TO SAE: 01/MAR/2012
     Route: 048
     Dates: start: 20120105, end: 20120308
  7. VEMURAFENIB [Suspect]
     Active Substance: VEMURAFENIB
     Dosage: DOSE REDUCED
     Route: 048
     Dates: start: 20120405
  8. COD LIVER OIL [Concomitant]
     Active Substance: COD LIVER OIL
     Route: 065
     Dates: start: 201101

REACTIONS (3)
  - Keratoacanthoma [Recovered/Resolved]
  - Blood creatinine increased [Not Recovered/Not Resolved]
  - Squamous cell carcinoma of skin [Recovered/Resolved]

NARRATIVE: CASE EVENT DATE: 20120301
